FAERS Safety Report 25466771 (Version 1)
Quarter: 2025Q2

REPORT INFORMATION
  Report Type: Spontaneous
  Country: GB (occurrence: GB)
  Receive Date: 20250623
  Receipt Date: 20250623
  Transmission Date: 20250717
  Serious: Yes (Hospitalization)
  Sender: ROCHE
  Company Number: GB-ROCHE-10000314049

PATIENT
  Age: 83 Year
  Sex: Female

DRUGS (5)
  1. MABTHERA [Suspect]
     Active Substance: RITUXIMAB
     Indication: Immune thrombocytopenia
     Route: 042
  2. THYROXINE [Concomitant]
     Active Substance: LEVOTHYROXINE
  3. PROPRANOLOL [Concomitant]
     Active Substance: PROPRANOLOL HYDROCHLORIDE
  4. SERTRALINE HYDROCHLORIDE [Concomitant]
     Active Substance: SERTRALINE HYDROCHLORIDE
  5. CALCIUM [Concomitant]
     Active Substance: CALCIUM

REACTIONS (3)
  - Pulmonary embolism [Unknown]
  - Pruritus [Unknown]
  - Erythema [Unknown]
